FAERS Safety Report 25679231 (Version 1)
Quarter: 2025Q3

REPORT INFORMATION
  Report Type: Spontaneous
  Country: US (occurrence: US)
  Receive Date: 20250814
  Receipt Date: 20250814
  Transmission Date: 20251021
  Serious: Yes (Life-Threatening, Hospitalization)
  Sender: AMGEN
  Company Number: US-AMGEN-USASP2025158247

PATIENT
  Age: 6 Year
  Sex: Male

DRUGS (4)
  1. RITUXIMAB [Suspect]
     Active Substance: RITUXIMAB
     Indication: Cold type haemolytic anaemia
     Route: 065
  2. METHYLPREDNISOLONE [Concomitant]
     Active Substance: METHYLPREDNISOLONE
     Indication: Warm autoimmune haemolytic anaemia
  3. TACROLIMUS [Concomitant]
     Active Substance: TACROLIMUS
  4. SIROLIMUS [Concomitant]
     Active Substance: SIROLIMUS

REACTIONS (7)
  - Chronic disease decompensation [Unknown]
  - Mycoplasma infection [Unknown]
  - Thrombotic microangiopathy [Unknown]
  - Schistocytosis [Unknown]
  - Hypertension [Unknown]
  - Drug ineffective for unapproved indication [Unknown]
  - Off label use [Unknown]
